FAERS Safety Report 9493537 (Version 1)
Quarter: 2013Q3

REPORT INFORMATION
  Report Type: Spontaneous
  Country: US (occurrence: US)
  Receive Date: 20130902
  Receipt Date: 20130902
  Transmission Date: 20140515
  Serious: No
  Sender: FDA-Public Use
  Company Number: US-PFIZER INC-2013249664

PATIENT
  Age: 58 Year
  Sex: Female
  Weight: 83.9 kg

DRUGS (5)
  1. CELEBREX [Suspect]
     Indication: RHEUMATOID ARTHRITIS
     Dosage: 200 MG, 1X/DAY
     Dates: start: 201009, end: 201307
  2. CELEBREX [Suspect]
     Indication: OEDEMA PERIPHERAL
  3. CELEBREX [Suspect]
     Indication: JOINT SWELLING
  4. LEVOTHYROXINE SODIUM [Concomitant]
     Indication: HYPERTHYROIDISM
     Dosage: UNK
  5. LORATADINE [Concomitant]
     Indication: HYPERSENSITIVITY
     Dosage: UNK

REACTIONS (4)
  - Local swelling [Unknown]
  - Local swelling [Unknown]
  - Joint swelling [Unknown]
  - Insomnia [Unknown]
